FAERS Safety Report 18234522 (Version 1)
Quarter: 2020Q3

REPORT INFORMATION
  Report Type: Spontaneous
  Country: US (occurrence: US)
  Receive Date: 20200904
  Receipt Date: 20200904
  Transmission Date: 20201103
  Serious: Yes (Other)
  Sender: FDA-Public Use
  Company Number: US-PURDUE-USA-2020-0164625

PATIENT
  Sex: Male

DRUGS (2)
  1. HYDROCODONE BITARTRATE AND ACETAMINOPHEN [Suspect]
     Active Substance: ACETAMINOPHEN\HYDROCODONE BITARTRATE
     Indication: SPINAL COLUMN INJURY
     Dosage: UNKNOWN
     Route: 048
     Dates: start: 2001, end: 2009
  2. OXYCONTIN [Suspect]
     Active Substance: OXYCODONE HYDROCHLORIDE
     Indication: SPINAL COLUMN INJURY
     Dosage: UNKNOWN
     Route: 048
     Dates: start: 2001, end: 2009

REACTIONS (4)
  - Drug withdrawal syndrome [Unknown]
  - Drug abuse [Unknown]
  - Hepatitis C [Unknown]
  - Drug dependence [Unknown]
